FAERS Safety Report 10082320 (Version 1)
Quarter: 2014Q2

REPORT INFORMATION
  Report Type: Spontaneous
  Country: GB (occurrence: GB)
  Receive Date: 20140416
  Receipt Date: 20140416
  Transmission Date: 20141212
  Serious: Yes (Other)
  Sender: FDA-Public Use
  Company Number: GB-TEVA-473926ISR

PATIENT
  Age: 6 Decade
  Sex: Female

DRUGS (3)
  1. SIMVASTATIN [Suspect]
     Indication: HYPERCHOLESTEROLAEMIA
     Dates: start: 2000, end: 2002
  2. COD LIVER OIL [Concomitant]
  3. GARLIC [Concomitant]

REACTIONS (4)
  - Pain in extremity [Unknown]
  - Back pain [Unknown]
  - Musculoskeletal pain [Unknown]
  - Joint instability [Unknown]
